FAERS Safety Report 6736482-X (Version None)
Quarter: 2010Q2

REPORT INFORMATION
  Report Type: 
  Country: None (occurrence: None)
  Receive Date: 20100521
  Receipt Date: 20100511
  Transmission Date: 20101027
  Serious: Yes (Hospitalization)
  Sender: FDA-Public Use
  Company Number: US-ELI_LILLY_AND_COMPANY-US201004003801

PATIENT
  Sex: Female
  Weight: 91.156 kg

DRUGS (20)
  1. BYETTA [Suspect]
     Indication: TYPE 2 DIABETES MELLITUS
     Dosage: 5 UG, 2/D
     Route: 058
     Dates: start: 20061219
  2. BYETTA [Suspect]
     Dosage: 10 UG, 2/D
     Route: 058
     Dates: end: 20090101
  3. BYETTA [Suspect]
     Dosage: 5 UG, 2/D
     Route: 058
     Dates: start: 20090101
  4. BYETTA [Suspect]
     Dosage: 10 UG, 2/D
     Route: 058
  5. ACTOS /SCH/ [Concomitant]
     Indication: TYPE 2 DIABETES MELLITUS
     Dates: start: 20090101, end: 20100412
  6. GLUCOPHAGE [Concomitant]
     Indication: TYPE 2 DIABETES MELLITUS
     Dosage: 1000 MG, UNK
     Route: 048
     Dates: end: 20090101
  7. COREG [Concomitant]
     Indication: HYPERTENSION
     Dosage: 37.5 MG, 2/D
  8. COREG [Concomitant]
     Dosage: 25 MG, UNK
     Route: 048
  9. LASIX [Concomitant]
     Indication: OEDEMA
     Dosage: 40 MG, DAILY (1/D)
     Route: 048
  10. NORVASC [Concomitant]
     Dosage: 10 MG, DAILY (1/D)
  11. COUMADIN [Concomitant]
     Indication: MITRAL VALVE REPLACEMENT
     Dosage: 3 MG, DAILY (1/D)
  12. COUMADIN [Concomitant]
     Dosage: 3 MG, DAILY (1/D)
     Route: 048
  13. CARDURA [Concomitant]
     Dosage: 1 MG, EACH EVENING
  14. CRESTOR [Concomitant]
     Indication: BLOOD CHOLESTEROL
     Dosage: 10 MG, DAILY (1/D)
  15. CRESTOR [Concomitant]
     Dosage: 10 MG, DAILY (1/D)
  16. IRON [Concomitant]
     Dosage: UNK, DAILY (1/D)
  17. MULTI-VITAMINS [Concomitant]
     Dosage: UNK, DAILY (1/D)
  18. MAGNESIUM [Concomitant]
     Indication: SUPPLEMENTATION THERAPY
     Dosage: 500 MG, UNK
     Route: 048
  19. CIMETIDINE [Concomitant]
     Indication: URTICARIA
     Dosage: 800 MG, UNK
     Route: 048
  20. ATARAX [Concomitant]
     Indication: URTICARIA
     Dosage: 25 MG, UNK
     Route: 048

REACTIONS (16)
  - ANAEMIA [None]
  - BACK PAIN [None]
  - BLOOD GLUCOSE DECREASED [None]
  - BLOOD GLUCOSE INCREASED [None]
  - DECREASED APPETITE [None]
  - DIZZINESS [None]
  - HAEMORRHAGE [None]
  - INTERNATIONAL NORMALISED RATIO INCREASED [None]
  - JOINT SWELLING [None]
  - OEDEMA PERIPHERAL [None]
  - PAIN IN EXTREMITY [None]
  - RECTAL HAEMORRHAGE [None]
  - RENAL DISORDER [None]
  - SCIATICA [None]
  - WEIGHT DECREASED [None]
  - WEIGHT INCREASED [None]
